FAERS Safety Report 25961474 (Version 3)
Quarter: 2025Q4

REPORT INFORMATION
  Report Type: Spontaneous
  Country: EU (occurrence: EU)
  Receive Date: 20251027
  Receipt Date: 20251226
  Transmission Date: 20260117
  Serious: Yes (Other)
  Sender: KYOWA
  Company Number: EU-KYOWAKIRIN-2025KK020437

PATIENT

DRUGS (2)
  1. POTELIGEO [Suspect]
     Active Substance: MOGAMULIZUMAB-KPKC
     Indication: Cutaneous T-cell lymphoma
     Dosage: UNK
     Route: 065
     Dates: start: 2024, end: 2025
  2. UPADACITINIB [Concomitant]
     Active Substance: UPADACITINIB
     Indication: Product used for unknown indication
     Dosage: UNK
     Route: 065
     Dates: start: 2025

REACTIONS (3)
  - Lymphoproliferative disorder [Unknown]
  - Rectal ulcer [Unknown]
  - Drug eruption [Unknown]

NARRATIVE: CASE EVENT DATE: 20240101
